FAERS Safety Report 6265485-7 (Version None)
Quarter: 2009Q3

REPORT INFORMATION
  Report Type: 
  Country: None (occurrence: None)
  Receive Date: 20090713
  Receipt Date: 20090703
  Transmission Date: 20100115
  Serious: Yes (Other)
  Sender: FDA-Public Use
  Company Number: PHHY2009CA27457

PATIENT
  Sex: Male

DRUGS (4)
  1. RASILEZ [Suspect]
     Dosage: 150 MG, QD
  2. HYZAAR [Concomitant]
  3. NORVASC [Concomitant]
  4. ATENOLOL [Concomitant]

REACTIONS (1)
  - BLOOD PRESSURE INCREASED [None]
